FAERS Safety Report 14971632 (Version 1)
Quarter: 2018Q2

REPORT INFORMATION
  Report Type: Spontaneous
  Country: FR (occurrence: FR)
  Receive Date: 20180604
  Receipt Date: 20180604
  Transmission Date: 20180711
  Serious: Yes (Hospitalization)
  Sender: FDA-Public Use
  Company Number: FR-TEVA-2018-FR-901682

PATIENT
  Age: 64 Year
  Sex: Male
  Weight: 72 kg

DRUGS (7)
  1. BISOPROLOL (FUMARATE ACIDE DE) [Concomitant]
     Active Substance: BISOPROLOL FUMARATE
     Dosage: 10 MILLIGRAM DAILY;
     Route: 048
  2. AMOXICILLIN. [Suspect]
     Active Substance: AMOXICILLIN
     Indication: STREPTOCOCCAL SEPSIS
     Route: 042
     Dates: start: 20160326, end: 20160330
  3. ELIQUIS 2.5 MG, COATED TABLET [Concomitant]
     Dosage: 5 MILLIGRAM DAILY;
     Route: 048
  4. GENTAMICINE [Concomitant]
     Active Substance: GENTAMICIN
     Indication: STREPTOCOCCAL SEPSIS
     Route: 042
     Dates: start: 20160326, end: 20160327
  5. OMEXEL L.P. 0.4 MG, EXTENDED RELEASE COATED TABLET [Concomitant]
     Indication: PROSTATOMEGALY
     Dosage: .4 MILLIGRAM DAILY;
     Route: 048
  6. KEPPRA 500 MG, COATED TABLET [Concomitant]
     Dosage: 500 MILLIGRAM DAILY;
     Route: 048
  7. LEVOTHYROX 50 MICROGRAMS, TABLET SCORED [Concomitant]
     Indication: HYPOTHYROIDISM
     Dosage: 50 MICROGRAM DAILY;
     Route: 048

REACTIONS (1)
  - Drug reaction with eosinophilia and systemic symptoms [Recovered/Resolved]

NARRATIVE: CASE EVENT DATE: 20160327
